FAERS Safety Report 8581036-6 (Version None)
Quarter: 2012Q3

REPORT INFORMATION
  Report Type: 
  Country: None (occurrence: None)
  Receive Date: 20120809
  Receipt Date: 20120731
  Transmission Date: 20120928
  Serious: Yes (Other)
  Sender: FDA-Public Use
  Company Number: US-SANOFI-AVENTIS-2012SA054956

PATIENT
  Age: 56 Year
  Sex: Female

DRUGS (3)
  1. LANTUS [Suspect]
     Indication: TYPE 2 DIABETES MELLITUS
     Dosage: 40 UNITS IN THE AM, 40 UNITS IN THE PM
     Route: 058
     Dates: start: 20110101
  2. SOLOSTAR [Suspect]
     Indication: TYPE 2 DIABETES MELLITUS
     Dates: start: 20110101
  3. REGULAR INSULIN [Concomitant]

REACTIONS (3)
  - HAEMATOCHEZIA [None]
  - BLOOD GLUCOSE INCREASED [None]
  - COLONIC POLYP [None]
